FAERS Safety Report 15066019 (Version 1)
Quarter: 2018Q2

REPORT INFORMATION
  Report Type: Spontaneous
  Country: US (occurrence: US)
  Receive Date: 20180605
  Receipt Date: 20180605
  Transmission Date: 20180711
  Serious: Yes (Death)
  Sender: FDA-Public Use
  Company Number: None

PATIENT
  Age: 66 Year
  Sex: Male
  Weight: 133 kg

DRUGS (8)
  1. HYDROCHLOROTHIAZIDE. [Concomitant]
     Active Substance: HYDROCHLOROTHIAZIDE
  2. METFORMIN [Concomitant]
     Active Substance: METFORMIN HYDROCHLORIDE
  3. DURVALUMAB. [Suspect]
     Active Substance: DURVALUMAB
     Indication: PRODUCT USED FOR UNKNOWN INDICATION
     Dosage: OTHER FREQUENCY:MONTHLYX6;?
     Route: 042
     Dates: start: 20180522
  4. FAMOTIDINE. [Concomitant]
     Active Substance: FAMOTIDINE
  5. LISINOPRIL. [Concomitant]
     Active Substance: LISINOPRIL
  6. TREMELIMUMAB. [Suspect]
     Active Substance: TREMELIMUMAB
     Indication: PRODUCT USED FOR UNKNOWN INDICATION
     Route: 042
     Dates: start: 20180522
  7. ROSUVASTATIN. [Concomitant]
     Active Substance: ROSUVASTATIN
  8. TADALAFIL [Concomitant]
     Active Substance: TADALAFIL

REACTIONS (1)
  - Apnoea [None]

NARRATIVE: CASE EVENT DATE: 20180531
